FAERS Safety Report 24390737 (Version 3)
Quarter: 2024Q4

REPORT INFORMATION
  Report Type: Report from Study
  Country: BR (occurrence: BR)
  Receive Date: 20241003
  Receipt Date: 20241101
  Transmission Date: 20250115
  Serious: Yes (Other)
  Sender: CELLTRION
  Company Number: BR-CELLTRION INC.-2024BR011501

PATIENT

DRUGS (13)
  1. INFLIXIMAB [Suspect]
     Active Substance: INFLIXIMAB
     Indication: Crohn^s disease
     Dosage: 2 AMPOULES EVERY MONTH
     Route: 042
     Dates: start: 20231207
  2. INFLIXIMAB [Suspect]
     Active Substance: INFLIXIMAB
     Dosage: 2 AMPOULES EVERY MONTH
     Route: 042
     Dates: start: 20240514
  3. INFLIXIMAB [Suspect]
     Active Substance: INFLIXIMAB
     Dosage: 1.5 AMPOULE EVERY 4 WEEKS
     Route: 042
     Dates: start: 20210101
  4. AZATHIOPRINE [Concomitant]
     Active Substance: AZATHIOPRINE
     Indication: Crohn^s disease
     Dosage: 1.5 PILL A DAY
     Route: 048
     Dates: start: 20210722
  5. TRIMEBUTINE [Concomitant]
     Active Substance: TRIMEBUTINE
     Indication: Crohn^s disease
     Dosage: 2 PILLS A DAY; STARTED 3 MONTHS
     Route: 048
  6. PREDNISONE [Concomitant]
     Active Substance: PREDNISONE
     Indication: Crohn^s disease
     Dosage: 1 PILL A DAY
     Route: 048
  7. PROLIVE [Concomitant]
     Indication: Prophylaxis of vaginal flora imbalance
     Dosage: 2 PILLS A DAY
     Route: 048
  8. PROLIVE [Concomitant]
     Dosage: UNK
     Route: 048
     Dates: start: 2023
  9. OTILONIUM BROMIDE [Concomitant]
     Active Substance: OTILONIUM BROMIDE
     Indication: Abdominal pain
     Dosage: 2 PILLS A DAY
     Route: 048
  10. COLLAGEN [Concomitant]
     Active Substance: COLLAGEN
  11. VITAMIN D NOS [Concomitant]
     Active Substance: CHOLECALCIFEROL\ERGOCALCIFEROL
     Indication: Product used for unknown indication
     Dosage: 4 MONTHS AND ONGOING
     Route: 048
  12. GLUTAMINE [LEVOGLUTAMIDE] [Concomitant]
     Indication: Product used for unknown indication
     Dosage: 12 MONTHS AND ONGOING
     Route: 048
  13. OTILONIUM BROMIDE [Concomitant]
     Active Substance: OTILONIUM BROMIDE
     Indication: Product used for unknown indication
     Dosage: 2 PILLS A DAY
     Route: 048

REACTIONS (7)
  - Crohn^s disease [Recovered/Resolved]
  - COVID-19 [Recovered/Resolved]
  - Influenza [Recovered/Resolved]
  - Intentional dose omission [Recovered/Resolved]
  - Intentional product use issue [Unknown]
  - Therapeutic product effect incomplete [Unknown]
  - Therapeutic product effect decreased [Unknown]

NARRATIVE: CASE EVENT DATE: 20240503
